FAERS Safety Report 7734933-5 (Version None)
Quarter: 2011Q3

REPORT INFORMATION
  Report Type: 
  Country: None (occurrence: None)
  Receive Date: 20110907
  Receipt Date: 20110830
  Transmission Date: 20111222
  Serious: Yes (Other)
  Sender: FDA-Public Use
  Company Number: PHHY2011FR78070

PATIENT
  Age: 71 Year
  Sex: Male

DRUGS (5)
  1. FAMVIR [Suspect]
     Indication: HERPES ZOSTER
     Dosage: 750 MG, UNK
     Dates: start: 20110705, end: 20110712
  2. VOLTAREN [Suspect]
     Dosage: UNK UKN, UNK
     Route: 030
     Dates: start: 20110706
  3. ACETAMINOPHEN [Concomitant]
     Dosage: UNK UKN, UNK
     Dates: start: 20110705, end: 20110712
  4. VOLTAREN [Suspect]
     Dosage: 75 MG/3 ML
     Route: 030
     Dates: start: 20110705
  5. CODEINE [Concomitant]
     Dosage: UNK UKN, UNK
     Dates: start: 20110705, end: 20110712

REACTIONS (13)
  - ERYTHEMA [None]
  - GAMMA-GLUTAMYLTRANSFERASE INCREASED [None]
  - HYPERTHERMIA [None]
  - CYTOLYTIC HEPATITIS [None]
  - ERYTHEMA MULTIFORME [None]
  - TOXIC SKIN ERUPTION [None]
  - RASH [None]
  - PRURIGO [None]
  - BLOOD ALKALINE PHOSPHATASE INCREASED [None]
  - ALANINE AMINOTRANSFERASE INCREASED [None]
  - EOSINOPHILIA [None]
  - HEPATOMEGALY [None]
  - SKIN EXFOLIATION [None]
